FAERS Safety Report 12218460 (Version 8)
Quarter: 2018Q4

REPORT INFORMATION
  Report Type: Spontaneous
  Country: US (occurrence: US)
  Receive Date: 20160329
  Receipt Date: 20181113
  Transmission Date: 20190204
  Serious: Yes (Hospitalization, Disabling, Other)
  Sender: FDA-Public Use
  Company Number: US-009507513-1603USA012533

PATIENT
  Sex: Female
  Weight: 76.64 kg

DRUGS (1)
  1. NUVARING [Suspect]
     Active Substance: ETHINYL ESTRADIOL\ETONOGESTREL
     Indication: CONTRACEPTION
     Dosage: 1 DF, QM
     Route: 067
     Dates: start: 2010, end: 201404

REACTIONS (19)
  - Superior sagittal sinus thrombosis [Recovering/Resolving]
  - Nausea [Unknown]
  - Stress [Unknown]
  - Eye pain [Unknown]
  - Cellulitis [Unknown]
  - Ingrowing nail [Unknown]
  - Maternal exposure before pregnancy [Unknown]
  - Eye symptom [Unknown]
  - Breast feeding [Unknown]
  - Palpitations [Recovered/Resolved]
  - Urticaria [Unknown]
  - Mite allergy [Unknown]
  - Dehydration [Unknown]
  - Diplopia [Recovered/Resolved]
  - Superior sagittal sinus thrombosis [Unknown]
  - Rhinitis allergic [Unknown]
  - Abscess limb [Unknown]
  - Hypercoagulation [Unknown]
  - Headache [Unknown]

NARRATIVE: CASE EVENT DATE: 2014
